FAERS Safety Report 6030899-7 (Version None)
Quarter: 2009Q1

REPORT INFORMATION
  Report Type: 
  Country: None (occurrence: None)
  Receive Date: 20090107
  Receipt Date: 20081216
  Transmission Date: 20090719
  Serious: Yes (Other)
  Sender: FDA-Public Use
  Company Number: US-PFIZER INC-2008157074

PATIENT
  Sex: Female
  Weight: 78.017 kg

DRUGS (11)
  1. CHANTIX [Suspect]
     Indication: SMOKING CESSATION THERAPY
     Dosage: UNK
     Dates: start: 20081029, end: 20081228
  2. IMDUR [Concomitant]
     Indication: CARDIAC DISORDER
     Dosage: UNK
  3. DOXEPIN HYDROCHLORIDE [Concomitant]
     Indication: SLEEP DISORDER
     Dosage: UNK
  4. LORTAB [Concomitant]
     Indication: PAIN
     Dosage: UNK
  5. XANAX [Concomitant]
     Dosage: UNK
  6. LOPRESSOR [Concomitant]
     Dosage: UNK
  7. HYDRALAZINE [Concomitant]
     Dosage: UNK
  8. PAXIL [Concomitant]
     Dosage: UNK
  9. ACTIGALL [Concomitant]
     Dosage: UNK
  10. LASIX [Concomitant]
     Dosage: UNK
  11. ACETYLSALICYLIC ACID [Concomitant]
     Dosage: 81 MG, UNK

REACTIONS (1)
  - HALLUCINATION, VISUAL [None]
